FAERS Safety Report 5078004-8 (Version None)
Quarter: 2006Q3

REPORT INFORMATION
  Report Type: 
  Country: None (occurrence: None)
  Receive Date: 20060811
  Receipt Date: 20060731
  Transmission Date: 20061208
  Serious: Yes (Hospitalization)
  Sender: FDA-Public Use
  Company Number: AU-JNJFOC-20060801931

PATIENT
  Sex: Male
  Weight: 95 kg

DRUGS (2)
  1. TRAMADOL HCL [Suspect]
     Indication: DRUG USE FOR UNKNOWN INDICATION
     Route: 048
  2. CODALGIN [Concomitant]
     Route: 065

REACTIONS (7)
  - ANXIETY [None]
  - BALANCE DISORDER [None]
  - CONFUSIONAL STATE [None]
  - HYPERHIDROSIS [None]
  - IRRITABILITY [None]
  - SKIN IRRITATION [None]
  - VISION BLURRED [None]
